FAERS Safety Report 5862147-2 (Version None)
Quarter: 2008Q3

REPORT INFORMATION
  Report Type: 
  Country: None (occurrence: None)
  Receive Date: 20080828
  Receipt Date: 20080814
  Transmission Date: 20090109
  Serious: No
  Sender: FDA-Public Use
  Company Number: A0725336A

PATIENT
  Age: 58 Year
  Sex: Female

DRUGS (9)
  1. ACYCLOVIR [Suspect]
     Indication: GENITAL HERPES
     Dosage: 800MG FIVE TIMES PER DAY
     Route: 048
  2. VALTREX [Suspect]
     Indication: GENITAL HERPES
     Dosage: 1G FIVE TIMES PER DAY
     Route: 048
     Dates: start: 20080101
  3. LEVOXYL [Concomitant]
  4. UNKNOWN MEDICATION [Concomitant]
  5. BUSPIRONE HCL [Concomitant]
  6. CORAL CALCIUM [Concomitant]
  7. DIETARY SUPPLEMENT [Concomitant]
  8. ANALPRAM-HC [Concomitant]
  9. ACYCLOVIR [Concomitant]

REACTIONS (9)
  - ANXIETY [None]
  - DRUG INEFFECTIVE [None]
  - GINGIVAL ABSCESS [None]
  - GINGIVAL PAIN [None]
  - IMPAIRED HEALING [None]
  - INSOMNIA [None]
  - NAUSEA [None]
  - OVERDOSE [None]
  - PAIN [None]
